FAERS Safety Report 9448696 (Version 1)
Quarter: 2013Q3

REPORT INFORMATION
  Report Type: Spontaneous
  Country: US (occurrence: US)
  Receive Date: 20130808
  Receipt Date: 20130808
  Transmission Date: 20140515
  Serious: No
  Sender: FDA-Public Use
  Company Number: US-PFIZER INC-2013230190

PATIENT
  Age: 59 Year
  Sex: Female
  Weight: 61.22 kg

DRUGS (6)
  1. ALAVERT [Suspect]
     Indication: HYPERSENSITIVITY
     Dosage: 10 MG, DAILY ON AND OFF
     Route: 048
  2. LYRICA [Concomitant]
     Indication: FIBROMYALGIA
     Dosage: 150 MG, DAILY
  3. CALCIUM [Concomitant]
     Dosage: UNK
  4. B COMPLEX [Concomitant]
     Dosage: UNK
  5. FISH OIL [Concomitant]
     Dosage: UNK
  6. FLAXSEED OIL [Concomitant]
     Dosage: UNK

REACTIONS (2)
  - Accidental overdose [Unknown]
  - Feeling abnormal [Unknown]
